FAERS Safety Report 25017809 (Version 1)
Quarter: 2025Q1

REPORT INFORMATION
  Report Type: Spontaneous
  Country: US (occurrence: None)
  Receive Date: 20250226
  Receipt Date: 20250226
  Transmission Date: 20250408
  Serious: Yes (Other)
  Sender: FDA-CTU
  Company Number: None

PATIENT
  Age: 78 Year
  Sex: Female
  Weight: 153 kg

DRUGS (3)
  1. LEVOFLOXACIN [Suspect]
     Active Substance: LEVOFLOXACIN
     Indication: Pneumonia
     Dosage: FREQUENCY : DAILY;?
     Route: 042
     Dates: start: 20240220, end: 20240225
  2. LASIX [Suspect]
     Active Substance: FUROSEMIDE
  3. TAMIFLU [Suspect]
     Active Substance: OSELTAMIVIR PHOSPHATE

REACTIONS (5)
  - Electrocardiogram QT prolonged [None]
  - Atrial fibrillation [None]
  - Heart rate increased [None]
  - Blood potassium abnormal [None]
  - Pneumonia [None]

NARRATIVE: CASE EVENT DATE: 20250225
